FAERS Safety Report 15285504 (Version 1)
Quarter: 2018Q3

REPORT INFORMATION
  Report Type: Spontaneous
  Country: US (occurrence: US)
  Receive Date: 20180816
  Receipt Date: 20180816
  Transmission Date: 20181010
  Serious: No
  Sender: FDA-Public Use
  Company Number: US-ASTRAZENECA-2018SE93749

PATIENT
  Sex: Male

DRUGS (2)
  1. PLAVIX [Concomitant]
     Active Substance: CLOPIDOGREL BISULFATE
     Indication: ADJUVANT THERAPY
     Dosage: UNKNOWN
     Route: 065
  2. SYMBICORT [Suspect]
     Active Substance: BUDESONIDE\FORMOTEROL FUMARATE DIHYDRATE
     Indication: DYSPNOEA
     Dosage: UNKNOWN UNKNOWN
     Route: 055
     Dates: start: 2018

REACTIONS (8)
  - Oral candidiasis [Unknown]
  - Wrong technique in device usage process [Unknown]
  - Headache [Unknown]
  - Product use in unapproved indication [Recovered/Resolved]
  - Secretion discharge [Unknown]
  - Dysphonia [Unknown]
  - Bronchitis [Unknown]
  - Off label use [Recovered/Resolved]

NARRATIVE: CASE EVENT DATE: 2018
